FAERS Safety Report 10084173 (Version 1)
Quarter: 2014Q2

REPORT INFORMATION
  Report Type: Spontaneous
  Country: US (occurrence: US)
  Receive Date: 20140417
  Receipt Date: 20140417
  Transmission Date: 20141212
  Serious: Yes (Other)
  Sender: FDA-Public Use
  Company Number: US-PFIZER INC-2014105627

PATIENT
  Sex: Female
  Weight: 17.95 kg

DRUGS (5)
  1. ALPRAZOLAM [Suspect]
     Dosage: 10-20 MG PER DAY
     Route: 064
  2. LORAZEPAM [Suspect]
     Indication: DRUG WITHDRAWAL SYNDROME
     Dosage: 2 MG, EVERY 4 HRS
     Route: 064
  3. CHLORDIAZEPOXIDE [Suspect]
     Dosage: UNK
     Route: 064
  4. METHADONE [Concomitant]
     Indication: DRUG WITHDRAWAL MAINTENANCE THERAPY
     Dosage: UNK
     Route: 064
  5. COCAINE [Concomitant]
     Dosage: UNK, SPORADIC USE
     Route: 064

REACTIONS (3)
  - Maternal exposure during pregnancy [Unknown]
  - Premature baby [Unknown]
  - Low birth weight baby [Unknown]
